FAERS Safety Report 4884585-7 (Version None)
Quarter: 2005Q4

REPORT INFORMATION
  Report Type: 
  Country: None (occurrence: None)
  Receive Date: 20051201
  Receipt Date: 20050831
  Transmission Date: 20060501
  Serious: No
  Sender: FDA-Public Use
  Company Number: 2005PV001717

PATIENT
  Age: 54 Year
  Sex: Female
  Weight: 129.7287 kg

DRUGS (6)
  1. BYETTA [Suspect]
     Indication: DIABETES MELLITUS NON-INSULIN-DEPENDENT
     Dosage: 5 MCG;BID;SC
     Route: 058
     Dates: start: 20050831
  2. AMARYL [Concomitant]
  3. METFORMIN [Concomitant]
  4. ACTOS [Concomitant]
  5. AVELOX [Concomitant]
  6. LIPITOR [Concomitant]

REACTIONS (7)
  - BLOOD GLUCOSE DECREASED [None]
  - EARLY SATIETY [None]
  - FEELING JITTERY [None]
  - NAUSEA [None]
  - POLLAKIURIA [None]
  - THERAPEUTIC RESPONSE UNEXPECTED [None]
  - WEIGHT DECREASED [None]
